FAERS Safety Report 9681757 (Version 1)
Quarter: 2013Q4

REPORT INFORMATION
  Report Type: Spontaneous
  Country: SK (occurrence: SK)
  Receive Date: 20131111
  Receipt Date: 20131111
  Transmission Date: 20140711
  Serious: Yes (Hospitalization)
  Sender: FDA-Public Use
  Company Number: SK-GLAXOSMITHKLINE-B0941285A

PATIENT
  Age: 28 Year
  Sex: Female

DRUGS (1)
  1. ZINNAT [Suspect]
     Indication: SUBCUTANEOUS ABSCESS
     Dosage: 500MG UNKNOWN
     Route: 048
     Dates: start: 20131024, end: 20131024

REACTIONS (1)
  - Dermatitis allergic [Recovered/Resolved]
